FAERS Safety Report 7937316-8 (Version None)
Quarter: 2011Q4

REPORT INFORMATION
  Report Type: 
  Country: None (occurrence: None)
  Receive Date: 20111123
  Receipt Date: 20111115
  Transmission Date: 20120403
  Serious: Yes (Death)
  Sender: FDA-Public Use
  Company Number: DE-B.I. PHARMACEUTICALS,INC./RIDGEFIELD-2011-DE-06306DE

PATIENT
  Sex: Male
  Weight: 90 kg

DRUGS (9)
  1. NOVALGIN [Concomitant]
     Dosage: 4X40 DROPS
  2. ENOXAPARIN SODIUM [Concomitant]
     Indication: PULMONARY EMBOLISM
     Dosage: 0.4 ML
     Route: 058
     Dates: start: 20111107, end: 20111110
  3. KEPPRA [Concomitant]
     Dosage: 1000 MG
  4. NEPHROTRANS [Concomitant]
     Dosage: 1 ANZ
  5. DEXAMETHASON [Concomitant]
     Dosage: 4 MG
     Route: 048
  6. RAMIPRIL [Concomitant]
     Dosage: 5 MG
  7. PANTOPRAZOLE SODIUM [Concomitant]
     Dosage: 40 MG
  8. AMITRIPTYLINE HCL [Concomitant]
     Dosage: 50 MG
     Route: 048
  9. PRADAXA [Suspect]
     Indication: PULMONARY EMBOLISM
     Dosage: 220 MG
     Route: 048
     Dates: start: 20111026, end: 20111107

REACTIONS (7)
  - BLOOD URINE PRESENT [None]
  - PULMONARY EMBOLISM [None]
  - LOWER GASTROINTESTINAL HAEMORRHAGE [None]
  - RECTAL HAEMORRHAGE [None]
  - UROGENITAL HAEMORRHAGE [None]
  - HAEMATOCHEZIA [None]
  - URINARY BLADDER HAEMORRHAGE [None]
